FAERS Safety Report 6829798-X (Version None)
Quarter: 2010Q3

REPORT INFORMATION
  Report Type: 
  Country: None (occurrence: None)
  Receive Date: 20100709
  Receipt Date: 20090105
  Transmission Date: 20110219
  Serious: No
  Sender: FDA-Public Use
  Company Number: US-PFIZER INC-2007019443

PATIENT
  Sex: Female
  Weight: 52.16 kg

DRUGS (15)
  1. CHANTIX [Suspect]
     Indication: SMOKING CESSATION THERAPY
     Route: 048
     Dates: start: 20070201
  2. LEXAPRO [Concomitant]
     Route: 048
  3. ACIPHEX [Concomitant]
  4. ALL OTHER THERAPEUTIC PRODUCTS [Concomitant]
     Indication: BLOOD TRIGLYCERIDES
  5. PROMETHAZINE [Concomitant]
     Indication: NAUSEA
     Route: 048
  6. VYTORIN [Concomitant]
     Dosage: 10MG/80MG
     Route: 048
  7. NORCO [Concomitant]
     Route: 048
  8. NITROFURANTOIN [Concomitant]
     Route: 048
  9. NEXIUM [Concomitant]
     Route: 048
  10. MONTELUKAST SODIUM [Concomitant]
     Route: 048
  11. SOMA [Concomitant]
     Route: 048
  12. KLONOPIN [Concomitant]
     Route: 048
  13. DETROL LA [Concomitant]
     Route: 048
  14. LOPID [Concomitant]
     Route: 048
  15. ALBUTEROL [Concomitant]
     Route: 048

REACTIONS (3)
  - DRY EYE [None]
  - EYE PRURITUS [None]
  - TOBACCO USER [None]
